FAERS Safety Report 10244179 (Version 1)
Quarter: 2014Q2

REPORT INFORMATION
  Report Type: Spontaneous
  Country: US (occurrence: US)
  Receive Date: 20140618
  Receipt Date: 20140618
  Transmission Date: 20141212
  Serious: No
  Sender: FDA-Public Use
  Company Number: US-GLAXOSMITHKLINE-A1067269A

PATIENT
  Sex: Male

DRUGS (2)
  1. REQUIP XL [Suspect]
     Indication: NERVOUS SYSTEM DISORDER
     Dosage: 2MG UNKNOWN
     Dates: start: 20120907
  2. LAMICTAL [Suspect]
     Indication: BIPOLAR DISORDER
     Dosage: 200MG UNKNOWN
     Route: 065
     Dates: start: 20110523

REACTIONS (2)
  - Personality change [Unknown]
  - Stress [Unknown]
